FAERS Safety Report 7197904-6 (Version None)
Quarter: 2010Q4

REPORT INFORMATION
  Report Type: 
  Country: None (occurrence: None)
  Receive Date: 20101227
  Receipt Date: 20101220
  Transmission Date: 20110411
  Serious: Yes (Other)
  Sender: FDA-Public Use
  Company Number: US-BAYER-2010-007094

PATIENT
  Sex: Female

DRUGS (2)
  1. YASMIN [Suspect]
     Indication: ACNE
     Dosage: UNK
     Dates: start: 20050401, end: 20081001
  2. OCELLA [Suspect]
     Indication: ACNE
     Dosage: UNK
     Dates: start: 20081001, end: 20100401

REACTIONS (6)
  - ANXIETY [None]
  - EMOTIONAL DISTRESS [None]
  - GENERAL PHYSICAL HEALTH DETERIORATION [None]
  - INJURY [None]
  - PAIN [None]
  - PULMONARY EMBOLISM [None]
